FAERS Safety Report 9238048 (Version 1)
Quarter: 2013Q1

REPORT INFORMATION
  Report Type: Spontaneous
  Country: US (occurrence: None)
  Receive Date: 20121107
  Receipt Date: 20121107
  Transmission Date: 20140127
  Serious: No
  Sender: FDA-Public Use
  Company Number: 2012HGS-003771

PATIENT
  Age: 46 Year
  Sex: Female
  Weight: 53.98 kg

DRUGS (7)
  1. BENLYSTA [Suspect]
     Indication: SYSTEMIC LUPUS ERYTHEMATOSUS
     Dosage: 1 IN 28 D, INTRAVENOUS DRIP
     Route: 041
     Dates: start: 20120619
  2. PREDNISONE(PREDNISONE) (PREDNISONE) [Concomitant]
  3. VICODIN(VICODIN) (PARACETAMOL, HYDROCODONE BITARTRATE) [Concomitant]
  4. PLAQUENIL(HYDROXYCHLOROQUINE PHOSPHATE) (HYDROXYCHLOROQUINE PHOSPHATE) [Concomitant]
  5. ASA(ACETYLSALICYLIC ACID) (ACETYLSALICYLIC ACID) [Concomitant]
  6. NEXIUM(ESOMEPRAZOLE MAGNESIUM) (ESOMEPRAZOLE MAGNESIUM) [Concomitant]
  7. CARDIZEM(DILTIAZEM) (DILTIAZEM) [Concomitant]

REACTIONS (5)
  - Back pain [None]
  - Arthralgia [None]
  - Arthralgia [None]
  - Pain in extremity [None]
  - Pain in extremity [None]
